FAERS Safety Report 21577054 (Version 2)
Quarter: 2022Q4

REPORT INFORMATION
  Report Type: Spontaneous
  Country: IT (occurrence: IT)
  Receive Date: 20221110
  Receipt Date: 20221116
  Transmission Date: 20230112
  Serious: Yes (Life-Threatening, Hospitalization, Other)
  Sender: FDA-Public Use
  Company Number: None

PATIENT
  Age: 84 Year
  Sex: Male

DRUGS (14)
  1. DEURSIL [Suspect]
     Active Substance: URSODIOL
     Dosage: 300 MG, BID
  2. RIFAMPIN [Suspect]
     Active Substance: RIFAMPIN
     Dosage: 600 MG, QD, COLIMYCIN IV 9 MU ON FIRST DAY AND THEN 4.5 MU X2 / DAY + RIFAMPICIN 600 MG / DAY ORALLY
     Dates: start: 20220601, end: 20220607
  3. ENOXAPARIN SODIUM [Suspect]
     Active Substance: ENOXAPARIN SODIUM
     Dosage: 4000 IU
  4. COLISTIMETHATE SODIUM [Suspect]
     Active Substance: COLISTIMETHATE SODIUM
     Dosage: 9 10*6.IU, QD, COLIMYCIN IV 9 MU ON FIRST DAY AND THEN 4.5 MU X2 / DAY + RIFAMPICIN 600 MG / DAY ORA
     Route: 042
     Dates: start: 20220601, end: 20220607
  5. DOMPERIDONE [Concomitant]
     Active Substance: DOMPERIDONE
     Dosage: PERIDON 200ML 1 SCOOP X 2 / DAY
  6. PANTOPRAZOLE SODIUM [Concomitant]
     Active Substance: PANTOPRAZOLE SODIUM
     Dosage: UNK
  7. NEUPRO [Concomitant]
     Active Substance: ROTIGOTINE
     Dosage: NEUPRO 2 MG 1 PATCH IN 24 HOURS
  8. MAGALDRATE [Concomitant]
     Active Substance: MAGALDRATE
     Dosage: RIOPAN 1 BAG X 3
  9. LASIX [Concomitant]
     Active Substance: FUROSEMIDE
     Dosage: LASIX 1 FL X 2
  10. SPIRIVA [Concomitant]
     Active Substance: TIOTROPIUM BROMIDE MONOHYDRATE
     Dosage: SPIRIVA 1 PUFF.
  11. ZOFRAN [Concomitant]
     Active Substance: ONDANSETRON HYDROCHLORIDE
     Dosage: UNK
  12. ISOLYTE [MAGNESIUM CHLORIDE HEXAHYDRATE;POTASSIUM CHLORIDE;SODIUM ACET [Concomitant]
     Dosage: ISOLYTE 1500 CC DAY
  13. SERETIDE [Concomitant]
     Active Substance: FLUTICASONE PROPIONATE\SALMETEROL XINAFOATE
     Dosage: SERETIDE 25/125 MCG 1 PUFF
  14. ISOLYTE [CALCIUM CHLORIDE DIHYDRATE;GLUCOSE;MAGNESIUM CHLORIDE HEXAHYD [Concomitant]
     Dosage: ISOLYTE 1500 CC DAY

REACTIONS (2)
  - Acute kidney injury [Not Recovered/Not Resolved]
  - Overdose [Unknown]

NARRATIVE: CASE EVENT DATE: 20220603
